FAERS Safety Report 6237553-7 (Version None)
Quarter: 2009Q2

REPORT INFORMATION
  Report Type: 
  Country: None (occurrence: None)
  Receive Date: 20090617
  Receipt Date: 20090603
  Transmission Date: 20091009
  Serious: Yes (Death, Hospitalization, Other)
  Sender: FDA-Public Use
  Company Number: 232587K08USA

PATIENT
  Age: 62 Year
  Sex: Female

DRUGS (1)
  1. REBIF [Suspect]
     Indication: MULTIPLE SCLEROSIS
     Dosage: 44 MCG, 3 IN 1 WEEKS, SUBCUTANEOUS
     Route: 058
     Dates: start: 20031203, end: 20090306

REACTIONS (5)
  - CYSTITIS [None]
  - PNEUMONIA [None]
  - PNEUMONIA ASPIRATION [None]
  - RADIATION INJURY [None]
  - THROAT CANCER [None]
